FAERS Safety Report 5263783-7 (Version None)
Quarter: 2007Q1

REPORT INFORMATION
  Report Type: 
  Country: None (occurrence: None)
  Receive Date: 20070313
  Receipt Date: 20070226
  Transmission Date: 20070707
  Serious: Yes (Hospitalization)
  Sender: FDA-Public Use
  Company Number: US-ELI_LILLY_AND_COMPANY-US200607005066

PATIENT
  Age: 42 Year
  Sex: Female
  Weight: 64.399 kg

DRUGS (6)
  1. CYMBALTA [Suspect]
     Indication: GENERALISED ANXIETY DISORDER
     Dosage: 60 MG, UNK
     Dates: start: 20060407, end: 20060413
  2. CYMBALTA [Suspect]
     Dosage: 60 MG, UNK
     Dates: start: 20060414, end: 20060510
  3. TIZANIDINE HCL [Concomitant]
     Dosage: 4 MG, UNK
  4. ALLEGRA D /01367401/ [Concomitant]
     Dosage: 1 D/F, 2/D
  5. ADVAIR DISKUS 100/50 [Concomitant]
     Dosage: 100 U, 2/D
  6. CLONAZEPAM [Concomitant]
     Indication: ANXIETY
     Dosage: 1 MG, 2/D

REACTIONS (1)
  - HEPATITIS [None]
